FAERS Safety Report 8512621-5 (Version None)
Quarter: 2012Q2

REPORT INFORMATION
  Report Type: 
  Country: None (occurrence: None)
  Receive Date: 20120405
  Receipt Date: 20080922
  Transmission Date: 20120825
  Serious: Yes (Other)
  Sender: FDA-Public Use
  Company Number: PHEH2008US07355

PATIENT
  Age: 52 Year
  Sex: Female

DRUGS (14)
  1. RECLAST [Suspect]
     Indication: OSTEOPOROSIS
     Dosage: ONCE YEARLY
     Dates: start: 20080809, end: 20080809
  2. LYRICA [Concomitant]
  3. PREMARIN [Concomitant]
  4. CRESTOR [Concomitant]
  5. LORTAB [Concomitant]
  6. FLEXERIL [Concomitant]
  7. OMEGA-3-ACID ETHYL ESTERS (LOVAZA) [Concomitant]
  8. STOOL SOFTENER (DOCUSATE SODIUM) [Concomitant]
  9. GLUCOSAMINE (GLUCOSAMINE) [Concomitant]
  10. ULTRAM (TAMADOL HYDROCHLORIDE) [Concomitant]
  11. NASACORT [Concomitant]
  12. VITAMIN B12 [Concomitant]
  13. PHENERGAN WITH CODEINE (CEPHAELIS SPP, FLUID EXTRACT, CHLOROFORM, CITR [Concomitant]
  14. ZANTAC [Concomitant]

REACTIONS (3)
  - DYSPNOEA [None]
  - ERYTHEMA [None]
  - PAIN [None]
